FAERS Safety Report 16182163 (Version 1)
Quarter: 2019Q2

REPORT INFORMATION
  Report Type: Spontaneous
  Country: FR (occurrence: FR)
  Receive Date: 20190410
  Receipt Date: 20190410
  Transmission Date: 20190711
  Serious: Yes (Other)
  Sender: FDA-Public Use
  Company Number: FR-BAUSCH-BL-2019-010568

PATIENT
  Age: 18 Year
  Sex: Female

DRUGS (2)
  1. MONAZOL 2% CREAM [Suspect]
     Active Substance: SERTACONAZOLE NITRATE
     Indication: VULVOVAGINAL MYCOTIC INFECTION
     Dosage: ONE APPLICATION PER DAY
     Route: 067
     Dates: start: 20141212
  2. MONAZOL 300 MG PESSARY [Suspect]
     Active Substance: SERTACONAZOLE NITRATE
     Indication: VULVOVAGINAL MYCOTIC INFECTION
     Route: 067
     Dates: start: 20141212

REACTIONS (2)
  - Skin exfoliation [Recovered/Resolved]
  - Pruritus [Recovered/Resolved]

NARRATIVE: CASE EVENT DATE: 20141214
